FAERS Safety Report 25723457 (Version 1)
Quarter: 2025Q3

REPORT INFORMATION
  Report Type: Spontaneous
  Country: EU (occurrence: EU)
  Receive Date: 20250825
  Receipt Date: 20250825
  Transmission Date: 20251021
  Serious: Yes (Life-Threatening, Hospitalization, Other)
  Sender: RISING PHARMACEUTICALS
  Company Number: EU-RISINGPHARMA-DE-2025RISLIT00413

PATIENT
  Age: 24 Month
  Sex: Female
  Weight: 11 kg

DRUGS (6)
  1. MIVACURIUM CHLORIDE [Suspect]
     Active Substance: MIVACURIUM CHLORIDE
     Indication: General anaesthesia
     Route: 042
  2. MIDAZOLAM [Concomitant]
     Active Substance: MIDAZOLAM
     Indication: Product used for unknown indication
     Route: 048
  3. PROPOFOL [Concomitant]
     Active Substance: PROPOFOL
     Indication: Sedation
     Route: 065
  4. PROPOFOL [Concomitant]
     Active Substance: PROPOFOL
     Route: 065
  5. ALFENTANIL [Concomitant]
     Active Substance: ALFENTANIL
     Indication: Product used for unknown indication
     Route: 065
  6. SEVOFLURANE [Concomitant]
     Active Substance: SEVOFLURANE
     Indication: Product used for unknown indication

REACTIONS (7)
  - Paralysis [Recovered/Resolved]
  - Apnoea [Recovered/Resolved]
  - Unresponsive to stimuli [Recovered/Resolved]
  - Stress [Recovered/Resolved]
  - Blood pressure increased [Recovered/Resolved]
  - Tachycardia [Recovered/Resolved]
  - Hyperhidrosis [Recovered/Resolved]
